FAERS Safety Report 6507653-2 (Version None)
Quarter: 2009Q4

REPORT INFORMATION
  Report Type: 
  Country: None (occurrence: None)
  Receive Date: 20091221
  Receipt Date: 20091211
  Transmission Date: 20100525
  Serious: Yes (Death)
  Sender: FDA-Public Use
  Company Number: CN-BRACCO-000128

PATIENT
  Age: 50 Year
  Sex: Male

DRUGS (12)
  1. OMNIPAQUE 140 [Suspect]
     Indication: CATHETERISATION CARDIAC
     Route: 013
     Dates: start: 20091126, end: 20091126
  2. OMNIPAQUE 140 [Suspect]
     Indication: CORONARY ARTERIAL STENT INSERTION
     Route: 013
     Dates: start: 20091126, end: 20091126
  3. OMNIPAQUE 140 [Suspect]
     Indication: CORONARY ARTERY DISEASE
     Route: 013
     Dates: start: 20091126, end: 20091126
  4. NIKETHAMIDE [Concomitant]
     Route: 065
     Dates: start: 20091126, end: 20091126
  5. LOBELINE [Concomitant]
     Route: 065
     Dates: start: 20091126, end: 20091126
  6. IOPAMIRO [Suspect]
     Indication: CATHETERISATION CARDIAC
     Route: 013
     Dates: start: 20091126, end: 20091126
  7. IOPAMIRO [Suspect]
     Indication: CORONARY ARTERIAL STENT INSERTION
     Route: 013
     Dates: start: 20091126, end: 20091126
  8. IOPAMIRO [Suspect]
     Indication: CORONARY ARTERY DISEASE
     Route: 013
     Dates: start: 20091126, end: 20091126
  9. ATROPIN [Concomitant]
     Route: 065
     Dates: start: 20091126, end: 20091126
  10. DIMEFLINE [Concomitant]
     Route: 065
     Dates: start: 20091126, end: 20091126
  11. LIDOCAINE [Concomitant]
     Route: 065
     Dates: start: 20091126, end: 20091126
  12. EPINEPHRINE [Concomitant]
     Route: 065
     Dates: start: 20091126, end: 20091126

REACTIONS (2)
  - CARDIAC ARREST [None]
  - DRUG INTERACTION [None]
